FAERS Safety Report 24057614 (Version 1)
Quarter: 2024Q3

REPORT INFORMATION
  Report Type: Spontaneous
  Country: US (occurrence: US)
  Receive Date: 20240706
  Receipt Date: 20240706
  Transmission Date: 20241017
  Serious: No
  Sender: NOVARTIS
  Company Number: US-002147023-NVSC2024US138438

PATIENT
  Age: 65 Year
  Sex: Male

DRUGS (5)
  1. AFINITOR [Suspect]
     Active Substance: EVEROLIMUS
     Indication: Product used for unknown indication
     Dosage: UNK
     Route: 065
  2. LENVIMA [Suspect]
     Active Substance: LENVATINIB
     Indication: Renal cancer
     Dosage: 18 MG
     Route: 065
     Dates: start: 20240312
  3. LENVIMA [Suspect]
     Active Substance: LENVATINIB
     Dosage: 14 MG
     Route: 065
     Dates: start: 202405
  4. KEYTRUDA [Suspect]
     Active Substance: PEMBROLIZUMAB
     Indication: Product used for unknown indication
     Dosage: UNK
     Route: 065
  5. INLYTA [Suspect]
     Active Substance: AXITINIB
     Indication: Product used for unknown indication
     Route: 065

REACTIONS (10)
  - Diarrhoea [Recovered/Resolved]
  - Abdominal pain upper [Unknown]
  - Blood pressure increased [Unknown]
  - Bone pain [Recovering/Resolving]
  - Groin pain [Recovering/Resolving]
  - Musculoskeletal chest pain [Recovering/Resolving]
  - Back pain [Recovered/Resolved]
  - Cheilitis [Recovered/Resolved]
  - Eating disorder [Recovered/Resolved]
  - Dehydration [Recovered/Resolved]
